FAERS Safety Report 11886138 (Version 2)
Quarter: 2016Q1

REPORT INFORMATION
  Report Type: Spontaneous
  Country: US (occurrence: US)
  Receive Date: 20160104
  Receipt Date: 20160223
  Transmission Date: 20160526
  Serious: No
  Sender: FDA-Public Use
  Company Number: US-PFIZER INC-2015253755

PATIENT
  Age: 58 Year
  Sex: Female
  Weight: 90.72 kg

DRUGS (3)
  1. CELEBREX [Suspect]
     Active Substance: CELECOXIB
     Indication: BACK PAIN
     Dosage: 200 MG (ONE CAPSULE A DAY BY MOUTH), 1X/DAY
     Route: 048
     Dates: start: 201509
  2. CELEBREX [Suspect]
     Active Substance: CELECOXIB
     Indication: SPONDYLOLISTHESIS
  3. CELEBREX [Suspect]
     Active Substance: CELECOXIB
     Indication: SCIATICA

REACTIONS (2)
  - Drug administration error [Unknown]
  - Drug ineffective [Recovered/Resolved]
